FAERS Safety Report 4576535-8 (Version None)
Quarter: 2005Q1

REPORT INFORMATION
  Report Type: 
  Country: None (occurrence: None)
  Receive Date: 20050119
  Receipt Date: 20040511
  Transmission Date: 20050727
  Serious: Yes (Hospitalization)
  Sender: FDA-Public Use
  Company Number: A03200401502

PATIENT
  Sex: Female

DRUGS (10)
  1. PLAVIX [Suspect]
     Dosage: 75 MG QD - ORAL
     Route: 048
  2. ATENOLOL [Suspect]
     Dosage: 50 MG QD - ORAL
     Route: 048
     Dates: start: 19991230
  3. HYDROCHLOROTHIAZDE TAB [Suspect]
     Dosage: 25 MG QD
     Dates: start: 20000224, end: 20000404
  4. DIGOXIN [Concomitant]
  5. ISOSORBIDE [Concomitant]
  6. PIOGLITAZONE HCL [Concomitant]
  7. ATORVASTATIN [Concomitant]
  8. TRIAMCINOLONE ACETONIDE [Concomitant]
  9. ALBUTEROL [Concomitant]
  10. ISOPHANE INSULIN [Concomitant]

REACTIONS (1)
  - DIZZINESS [None]
